FAERS Safety Report 15334087 (Version 1)
Quarter: 2018Q3

REPORT INFORMATION
  Report Type: Spontaneous
  Country: US (occurrence: US)
  Receive Date: 20180830
  Receipt Date: 20180830
  Transmission Date: 20181010
  Serious: Yes (Hospitalization)
  Sender: FDA-Public Use
  Company Number: US-UNITED THERAPEUTICS-UNT-2018-009681

PATIENT
  Sex: Female

DRUGS (1)
  1. REMODULIN [Suspect]
     Active Substance: TREPROSTINIL
     Indication: PULMONARY ARTERIAL HYPERTENSION
     Dosage: 0.02285 ?G/KG, CONTINUING
     Route: 058
     Dates: start: 20160402

REACTIONS (2)
  - Heart valve incompetence [Unknown]
  - Tachycardia [Unknown]

NARRATIVE: CASE EVENT DATE: 20180528
